FAERS Safety Report 9727597 (Version 3)
Quarter: 2014Q1

REPORT INFORMATION
  Report Type: Spontaneous
  Country: CN (occurrence: CN)
  Receive Date: 20131203
  Receipt Date: 20140127
  Transmission Date: 20141002
  Serious: Yes (Hospitalization)
  Sender: FDA-Public Use
  Company Number: CN-B.I. PHARMACEUTICALS,INC./RIDGEFIELD-2013-BI-40281YA

PATIENT
  Age: 74 Year
  Sex: Male

DRUGS (3)
  1. HARNAL [Suspect]
     Indication: BENIGN PROSTATIC HYPERPLASIA
     Dosage: 0.2 MG
     Route: 048
     Dates: end: 20131122
  2. HARNAL [Suspect]
     Dosage: 0.4 MG
     Route: 048
     Dates: start: 20131123
  3. PROSCAR (FINASTERIDE) [Concomitant]
     Route: 065

REACTIONS (7)
  - Dry mouth [Recovered/Resolved]
  - Pyrexia [Recovered/Resolved]
  - Cough [Recovered/Resolved]
  - Asthenia [Recovered/Resolved]
  - Abasia [Recovered/Resolved]
  - Overdose [Unknown]
  - Drug ineffective [Unknown]
